FAERS Safety Report 24683056 (Version 2)
Quarter: 2025Q1

REPORT INFORMATION
  Report Type: Spontaneous
  Country: US (occurrence: US)
  Receive Date: 20241201
  Receipt Date: 20250122
  Transmission Date: 20250408
  Serious: No
  Sender: ALEXION PHARMACEUTICALS
  Company Number: US-AstraZeneca-CH-00755337AP

PATIENT
  Age: 61 Year

DRUGS (1)
  1. BYDUREON BCISE [Suspect]
     Active Substance: EXENATIDE
     Route: 065

REACTIONS (5)
  - Injection site pain [Unknown]
  - Device leakage [Unknown]
  - Drug dose omission by device [Unknown]
  - Device use issue [Unknown]
  - Inappropriate schedule of product administration [Unknown]
